FAERS Safety Report 14788981 (Version 1)
Quarter: 2018Q2

REPORT INFORMATION
  Report Type: Spontaneous
  Country: BR (occurrence: BR)
  Receive Date: 20180423
  Receipt Date: 20180423
  Transmission Date: 20180711
  Serious: Yes (Hospitalization)
  Sender: FDA-Public Use
  Company Number: BR-B.I. PHARMACEUTICALS,INC./RIDGEFIELD-2018-BI-021431

PATIENT
  Age: 20 Year
  Sex: Female
  Weight: 64 kg

DRUGS (6)
  1. FUROSEMIDA [Concomitant]
     Active Substance: FUROSEMIDE
     Indication: FLUID RETENTION
     Route: 048
     Dates: start: 2016
  2. ENALAPRIL [Concomitant]
     Active Substance: ENALAPRIL
     Indication: HYPERTENSION
     Route: 048
  3. ATENSINA [Suspect]
     Active Substance: CLONIDINE
     Indication: HYPERTENSION
     Route: 048
     Dates: end: 20180228
  4. ATENSINA [Suspect]
     Active Substance: CLONIDINE
     Dosage: DAILY DOSE NOT REPORTED
     Route: 065
     Dates: end: 20180311
  5. ATENSINA [Suspect]
     Active Substance: CLONIDINE
     Route: 048
     Dates: start: 20180311, end: 201804
  6. ESOMEPRAZOL [Concomitant]
     Active Substance: ESOMEPRAZOLE
     Indication: GASTRIC DISORDER
     Route: 048
     Dates: start: 201802

REACTIONS (2)
  - Blood pressure increased [Not Recovered/Not Resolved]
  - Pleural effusion [Recovered/Resolved]

NARRATIVE: CASE EVENT DATE: 20180228
